FAERS Safety Report 7753076-8 (Version None)
Quarter: 2011Q3

REPORT INFORMATION
  Report Type: 
  Country: None (occurrence: None)
  Receive Date: 20110915
  Receipt Date: 20110905
  Transmission Date: 20111222
  Serious: Yes (Other)
  Sender: FDA-Public Use
  Company Number: AU-JNJFOC-20110710146

PATIENT
  Sex: Male

DRUGS (3)
  1. STELARA [Suspect]
     Indication: PSORIASIS
     Route: 058
     Dates: start: 20110328
  2. STELARA [Suspect]
     Route: 058
     Dates: start: 20110621
  3. STELARA [Suspect]
     Route: 058
     Dates: start: 20110112

REACTIONS (7)
  - SKIN ULCER [None]
  - PSORIASIS [None]
  - WOUND INFECTION [None]
  - SKIN CANCER [None]
  - SUTURE RELATED COMPLICATION [None]
  - LACERATION [None]
  - INCISION SITE INFECTION [None]
